FAERS Safety Report 6901220-4 (Version None)
Quarter: 2010Q3

REPORT INFORMATION
  Report Type: 
  Country: None (occurrence: None)
  Receive Date: 20100803
  Receipt Date: 20100728
  Transmission Date: 20110219
  Serious: Yes (Death, Hospitalization)
  Sender: FDA-Public Use
  Company Number: FR-BAYER-201031729GPV

PATIENT
  Age: 90 Year
  Sex: Male

DRUGS (6)
  1. CIFLOX [Suspect]
     Indication: DEVICE RELATED INFECTION
     Route: 042
     Dates: start: 20100515
  2. CIFLOX [Suspect]
     Route: 042
  3. VANCOMYCIN HCL [Suspect]
     Indication: DEVICE RELATED INFECTION
     Route: 042
     Dates: start: 20100514, end: 20100514
  4. N-METHYL GENTAMYCINE SULPHATE [Suspect]
     Indication: DEVICE RELATED INFECTION
     Route: 042
     Dates: start: 20100514, end: 20100514
  5. AXEPIM [Suspect]
     Indication: DEVICE RELATED INFECTION
     Route: 042
     Dates: start: 20100515
  6. AXEPIM [Suspect]
     Route: 042
     Dates: end: 20100621

REACTIONS (2)
  - MULTI-ORGAN FAILURE [None]
  - RENAL FAILURE [None]
